FAERS Safety Report 8459736-8 (Version None)
Quarter: 2012Q2

REPORT INFORMATION
  Report Type: 
  Country: None (occurrence: None)
  Receive Date: 20120622
  Receipt Date: 20120613
  Transmission Date: 20120825
  Serious: Yes (Hospitalization, Disabling)
  Sender: FDA-Public Use
  Company Number: PR-MERCK-1110USA01115

PATIENT
  Age: 66 Year
  Sex: Female

DRUGS (8)
  1. FOSAMAX [Suspect]
     Indication: OSTEOPOROSIS
     Route: 048
     Dates: start: 19981101
  2. FOSAMAX [Suspect]
     Route: 048
     Dates: end: 20050101
  3. VITAMIN D (UNSPECIFIED) [Concomitant]
     Indication: VITAMIN D DEFICIENCY
     Route: 065
  4. CYANOCOBALAMIN [Concomitant]
     Route: 065
  5. FOSAMAX [Suspect]
     Route: 048
     Dates: end: 20050101
  6. ASCORBIC ACID [Concomitant]
     Route: 065
  7. FOSAMAX [Suspect]
     Indication: OSTEOPENIA
     Route: 048
     Dates: start: 19981101
  8. CALCIUM (UNSPECIFIED) [Concomitant]
     Indication: CALCIUM DEFICIENCY
     Route: 065

REACTIONS (26)
  - MUSCULOSKELETAL PAIN [None]
  - HYPERTENSION [None]
  - CATARACT [None]
  - DRUG HYPERSENSITIVITY [None]
  - COLONIC POLYP [None]
  - ULNA FRACTURE [None]
  - RADIUS FRACTURE [None]
  - FALL [None]
  - LIMB INJURY [None]
  - DEVICE FAILURE [None]
  - SKIN ULCER [None]
  - TIBIA FRACTURE [None]
  - LOW TURNOVER OSTEOPATHY [None]
  - OSTEOARTHRITIS [None]
  - WOUND DRAINAGE [None]
  - BURSITIS [None]
  - APHASIA [None]
  - ANKLE FRACTURE [None]
  - PATELLA FRACTURE [None]
  - HERPES ZOSTER [None]
  - FIBULA FRACTURE [None]
  - HYPOKALAEMIA [None]
  - CALCIUM DEFICIENCY [None]
  - VITAMIN D DEFICIENCY [None]
  - SKIN IRRITATION [None]
  - HYPERLIPIDAEMIA [None]
